FAERS Safety Report 9871237 (Version 1)
Quarter: 2014Q1

REPORT INFORMATION
  Report Type: Spontaneous
  Country: US (occurrence: US)
  Receive Date: 20140205
  Receipt Date: 20140205
  Transmission Date: 20141002
  Serious: Yes (Hospitalization)
  Sender: FDA-Public Use
  Company Number: US-GLAXOSMITHKLINE-A1058538A

PATIENT
  Age: 44 Year
  Sex: Female

DRUGS (37)
  1. ADVAIR HFA [Suspect]
     Indication: ASTHMA
     Dosage: 1PUFF TWICE PER DAY
     Route: 055
  2. VENTOLIN [Suspect]
     Indication: ASTHMA
     Dosage: 2PUFF AS REQUIRED
     Route: 055
  3. NICOTROL [Suspect]
     Indication: PRODUCT USED FOR UNKNOWN INDICATION
     Route: 065
  4. VANCOMYCIN [Concomitant]
  5. PEPCID [Concomitant]
  6. ZOFRAN [Concomitant]
  7. PLAQUENIL [Concomitant]
  8. SOMA [Concomitant]
  9. VIAGRA [Concomitant]
  10. POTASSIUM [Concomitant]
  11. BENTYL [Concomitant]
  12. VITAMIN D [Concomitant]
  13. MINIPRES [Concomitant]
  14. LOMOTIL [Concomitant]
  15. PROMETHAZINE [Concomitant]
  16. TRAZODONE [Concomitant]
  17. SYNTHROID [Concomitant]
  18. LEVBID [Concomitant]
  19. LEVSIN [Concomitant]
  20. CLARITIN [Concomitant]
  21. TRENTAL [Concomitant]
  22. PROTONIX [Concomitant]
  23. DIAMOX [Concomitant]
  24. ATROVENT [Concomitant]
  25. FLONASE [Concomitant]
  26. CARAFATE [Concomitant]
  27. RESTASIS [Concomitant]
  28. CLOSTRIDIUM BUTYRICUM [Concomitant]
  29. FLORASTOR [Concomitant]
  30. LIQUID POTASSIUM [Concomitant]
  31. TYLENOL [Concomitant]
  32. NYSTATIN SUSPENSION [Concomitant]
  33. NYSTATIN CREAM [Concomitant]
  34. FLAGYL [Concomitant]
  35. DIFICID [Concomitant]
  36. ALPRAZOLAM [Concomitant]
  37. DILAUDID [Concomitant]

REACTIONS (9)
  - Kidney infection [Unknown]
  - Clostridium difficile infection [Unknown]
  - Pneumonia [Not Recovered/Not Resolved]
  - Myocardial infarction [Unknown]
  - Clostridium test [Unknown]
  - Bronchitis [Not Recovered/Not Resolved]
  - Throat irritation [Unknown]
  - Weight fluctuation [Unknown]
  - Drug administration error [Unknown]
